FAERS Safety Report 15434619 (Version 1)
Quarter: 2018Q3

REPORT INFORMATION
  Report Type: Report from Study
  Country: US (occurrence: US)
  Receive Date: 20180927
  Receipt Date: 20180927
  Transmission Date: 20181010
  Serious: Yes (Hospitalization)
  Sender: FDA-Public Use
  Company Number: US-JNJFOC-20180932218

PATIENT
  Age: 82 Year
  Sex: Male

DRUGS (6)
  1. IMBRUVICA [Suspect]
     Active Substance: IBRUTINIB
     Indication: ANAEMIA
     Route: 048
     Dates: start: 20180908, end: 201809
  2. ASCORBIC ACID. [Concomitant]
     Active Substance: ASCORBIC ACID
  3. DICYCLOMINE [Concomitant]
     Active Substance: DICYCLOMINE HYDROCHLORIDE
  4. CYANOCOBALAMIN. [Concomitant]
     Active Substance: CYANOCOBALAMIN
  5. IMBRUVICA [Suspect]
     Active Substance: IBRUTINIB
     Indication: ANAEMIA
     Route: 048
     Dates: start: 201809
  6. FINASTERIDE. [Concomitant]
     Active Substance: FINASTERIDE

REACTIONS (4)
  - Product use in unapproved indication [Unknown]
  - Pain [Unknown]
  - Fall [Unknown]
  - Off label use [Unknown]

NARRATIVE: CASE EVENT DATE: 20180918
